FAERS Safety Report 24257753 (Version 1)
Quarter: 2024Q3

REPORT INFORMATION
  Report Type: Report from Study
  Country: US (occurrence: US)
  Receive Date: 20240828
  Receipt Date: 20240828
  Transmission Date: 20241016
  Serious: Yes (Other)
  Sender: MYLAN
  Company Number: US-MYLANLABS-2024M1078654

PATIENT
  Age: 37 Year
  Sex: Female

DRUGS (10)
  1. MINOCYCLINE [Suspect]
     Active Substance: MINOCYCLINE HYDROCHLORIDE
     Indication: Hidradenitis
     Dosage: UNK
     Route: 048
  2. DOXYCYCLINE [Suspect]
     Active Substance: DOXYCYCLINE\DOXYCYCLINE HYCLATE
     Indication: Hidradenitis
     Dosage: UNK
     Route: 048
  3. ISOTRETINOIN [Suspect]
     Active Substance: ISOTRETINOIN
     Indication: Hidradenitis
     Dosage: UNK
     Route: 048
  4. SULFAMETHOXAZOLE\TRIMETHOPRIM [Suspect]
     Active Substance: SULFAMETHOXAZOLE\TRIMETHOPRIM
     Indication: Hidradenitis
     Dosage: UNK
     Route: 048
  5. DAPSONE [Suspect]
     Active Substance: DAPSONE
     Indication: Hidradenitis
     Dosage: UNK UNK, QD {100-150 MG/DAY}
     Route: 048
  6. TETRACYCLINE [Suspect]
     Active Substance: TETRACYCLINE
     Indication: Hidradenitis
     Dosage: UNK
     Route: 048
  7. ADALIMUMAB [Concomitant]
     Active Substance: ADALIMUMAB
     Indication: Hidradenitis
     Dosage: 40 MILLIGRAM, BIWEEKLY
     Route: 065
  8. SILVADENE [Concomitant]
     Active Substance: SILVER SULFADIAZINE
     Indication: Hidradenitis
     Dosage: UNK
     Route: 061
  9. MUPIROCIN [Concomitant]
     Active Substance: MUPIROCIN
     Indication: Hidradenitis
     Dosage: UNK
     Route: 061
  10. TRIAMCINOLONE [Concomitant]
     Active Substance: TRIAMCINOLONE
     Indication: Hidradenitis
     Dosage: UNK
     Route: 061

REACTIONS (4)
  - Treatment failure [Unknown]
  - Nausea [Unknown]
  - Haemoglobin decreased [Unknown]
  - Off label use [Unknown]
